FAERS Safety Report 10621252 (Version 1)
Quarter: 2014Q4

REPORT INFORMATION
  Report Type: Spontaneous
  Country: SI (occurrence: SI)
  Receive Date: 20141203
  Receipt Date: 20141203
  Transmission Date: 20150529
  Serious: Yes (Other)
  Sender: FDA-Public Use
  Company Number: SI-AMGEN-SVNSP2014093256

PATIENT
  Age: 77 Year
  Sex: Male

DRUGS (12)
  1. GLURENORM [Concomitant]
     Dosage: 2 DF, QD
  2. CONCOR [Concomitant]
     Active Substance: BISOPROLOL FUMARATE
     Dosage: 2.5 MG, QD
  3. DUROGESIC [Concomitant]
     Active Substance: FENTANYL
     Dosage: 100 MG, UNK
  4. ABSTRAL [Concomitant]
     Active Substance: FENTANYL CITRATE
     Dosage: 100 MG, UNK
  5. LACTECON [Concomitant]
     Dosage: UNK
  6. NEXIUM [Concomitant]
     Active Substance: ESOMEPRAZOLE MAGNESIUM
     Dosage: 20 MG, QD
  7. MEDROL [Concomitant]
     Active Substance: METHYLPREDNISOLONE
     Dosage: UNK
  8. PLIVIT D3 [Concomitant]
     Active Substance: CHOLECALCIFEROL
     Dosage: 1 DF, QD
  9. XGEVA [Suspect]
     Active Substance: DENOSUMAB
     Indication: METASTASES TO BONE
     Dosage: 120 MG, QMO
     Route: 065
     Dates: start: 201308, end: 20140820
  10. ZYTIGA [Concomitant]
     Active Substance: ABIRATERONE ACETATE
     Dosage: UNK
  11. ENAP H [Concomitant]
     Dosage: 10/25, QD
  12. MAREVAN [Concomitant]
     Active Substance: WARFARIN SODIUM
     Dosage: 1 DF, QD

REACTIONS (3)
  - Osteonecrosis of jaw [Unknown]
  - Loose tooth [Unknown]
  - Tooth loss [Unknown]
